FAERS Safety Report 15239821 (Version 2)
Quarter: 2018Q3

REPORT INFORMATION
  Report Type: Report from Study
  Country: EC (occurrence: EC)
  Receive Date: 20180803
  Receipt Date: 20180904
  Transmission Date: 20181010
  Serious: Yes (Death, Other)
  Sender: FDA-Public Use
  Company Number: PHHY2018EC060492

PATIENT
  Age: 65 Year
  Sex: Male

DRUGS (1)
  1. ENTRESTO [Suspect]
     Active Substance: SACUBITRIL\VALSARTAN
     Indication: CARDIAC FAILURE
     Dosage: 50 MG, (24 MG SACUBITRIL AND 26 MG VALSARTAN) BID
     Route: 048
     Dates: start: 20180315, end: 20180615

REACTIONS (1)
  - Cardiac cirrhosis [Fatal]

NARRATIVE: CASE EVENT DATE: 20180601
